FAERS Safety Report 5403747-3 (Version None)
Quarter: 2007Q3

REPORT INFORMATION
  Report Type: 
  Country: None (occurrence: None)
  Receive Date: 20070802
  Receipt Date: 20070611
  Transmission Date: 20080115
  Serious: Yes (Hospitalization, Other)
  Sender: FDA-Public Use
  Company Number: US-PURDUE-USA_2007_0028025

PATIENT
  Age: 36 Year
  Sex: Male
  Weight: 127 kg

DRUGS (4)
  1. OXYCONTIN [Suspect]
     Indication: PAIN
     Dosage: 40 MG, TID
     Dates: start: 19991129, end: 20000501
  2. OXYIR [Concomitant]
     Indication: BREAKTHROUGH PAIN
     Dosage: 10 MG, BID
  3. CELEBREX [Concomitant]
     Dosage: 200 MG, DAILY
  4. FLEXERIL [Concomitant]
     Dosage: 10 MG, PRN

REACTIONS (26)
  - BRADYPHRENIA [None]
  - BRAIN DAMAGE [None]
  - CARDIAC VALVE DISEASE [None]
  - CHILLS [None]
  - CONFUSIONAL STATE [None]
  - CONSTIPATION [None]
  - COORDINATION ABNORMAL [None]
  - DEPRESSION [None]
  - DRUG ABUSER [None]
  - DRUG DEPENDENCE [None]
  - DRUG INTOLERANCE [None]
  - DRUG WITHDRAWAL SYNDROME [None]
  - DYSPNOEA [None]
  - ENDOCARDITIS [None]
  - EUPHORIC MOOD [None]
  - FATIGUE [None]
  - HEADACHE [None]
  - HEPATITIS C [None]
  - INFECTION [None]
  - INFLUENZA LIKE ILLNESS [None]
  - MALAISE [None]
  - PAIN [None]
  - PARANOIA [None]
  - PYREXIA [None]
  - SEPSIS [None]
  - THINKING ABNORMAL [None]
